FAERS Safety Report 10759818 (Version 1)
Quarter: 2015Q1

REPORT INFORMATION
  Report Type: Spontaneous
  Country: JP (occurrence: JP)
  Receive Date: 20150203
  Receipt Date: 20150203
  Transmission Date: 20150721
  Serious: Yes (Other)
  Sender: FDA-Public Use
  Company Number: JP-GLAXOSMITHKLINE-JP2015JPN011861

PATIENT

DRUGS (5)
  1. GW685698 + GW642444 [Suspect]
     Active Substance: FLUTICASONE FUROATE\VILANTEROL TRIFENATATE
     Indication: NASOPHARYNGITIS
     Dosage: 1 DF, QD
     Route: 055
     Dates: start: 20150127, end: 20150128
  2. SINGULAIR [Concomitant]
     Active Substance: MONTELUKAST SODIUM
  3. TULOBUTEROL [Concomitant]
     Active Substance: TULOBUTEROL
  4. CLARITHROMYCIN. [Concomitant]
     Active Substance: CLARITHROMYCIN
  5. MUCOSAL [Concomitant]

REACTIONS (9)
  - Oropharyngeal pain [Not Recovered/Not Resolved]
  - Productive cough [Unknown]
  - Pharyngeal oedema [Unknown]
  - Dysphonia [Not Recovered/Not Resolved]
  - Cough [Not Recovered/Not Resolved]
  - Insomnia [Unknown]
  - Anaphylactoid reaction [Unknown]
  - Cough [Unknown]
  - Rhinorrhoea [Unknown]

NARRATIVE: CASE EVENT DATE: 20150127
